FAERS Safety Report 10030354 (Version 1)
Quarter: 2014Q1

REPORT INFORMATION
  Report Type: Spontaneous
  Country: US (occurrence: US)
  Receive Date: 20140323
  Receipt Date: 20140323
  Transmission Date: 20141002
  Serious: No
  Sender: FDA-Public Use
  Company Number: US-ALLERGAN-1307245US

PATIENT
  Age: 66 Year
  Sex: Female

DRUGS (4)
  1. LATISSE 0.03% [Suspect]
     Indication: GROWTH OF EYELASHES
     Dosage: 1 GTT, UNK
     Route: 061
  2. LATISSE 0.03% [Suspect]
     Dosage: 1 GTT, UNK
     Route: 061
  3. BLOOD PRESSURE MEDICATION NOS [Concomitant]
     Indication: HYPERTENSION
     Dosage: UNK, PRN
     Route: 048
  4. DAILY VITAMINS [Concomitant]
     Indication: SUPPLEMENTATION THERAPY
     Dosage: UNK

REACTIONS (13)
  - Wrong technique in drug usage process [Unknown]
  - Incorrect dose administered [Unknown]
  - Inappropriate schedule of drug administration [Unknown]
  - Facial pain [Unknown]
  - Sinus headache [Unknown]
  - Swelling face [Unknown]
  - Mydriasis [Unknown]
  - Inflammation [Unknown]
  - Glassy eyes [Unknown]
  - Headache [Unknown]
  - Eye pain [Unknown]
  - Headache [Unknown]
  - Lacrimation increased [Unknown]
